FAERS Safety Report 5819605-6 (Version None)
Quarter: 2008Q3

REPORT INFORMATION
  Report Type: 
  Country: None (occurrence: None)
  Receive Date: 20080723
  Receipt Date: 20080124
  Transmission Date: 20090109
  Serious: No
  Sender: FDA-Public Use
  Company Number: US-BOEHRINGER INGELHEIM GMBH, GERMANY-2007-BP-05616BP

PATIENT
  Sex: Male
  Weight: 102 kg

DRUGS (23)
  1. MIRAPEX [Suspect]
     Indication: PARKINSON'S DISEASE
     Dates: start: 20021201, end: 20050815
  2. SINEMET [Concomitant]
     Dates: start: 20000401
  3. REQUIP [Concomitant]
     Dates: start: 20050801, end: 20050801
  4. ARTANE [Concomitant]
     Indication: PARKINSON'S DISEASE
     Dates: start: 20050801
  5. ZOCOR [Concomitant]
     Indication: BLOOD CHOLESTEROL
     Route: 048
  6. POTASSIUM CHLORIDE [Concomitant]
  7. NIACIN [Concomitant]
     Route: 048
  8. ASCORBIC ACID [Concomitant]
  9. COQ10 [Concomitant]
     Route: 048
  10. PRILOSEC [Concomitant]
     Indication: STOMACH DISCOMFORT
     Route: 048
  11. FLURISOLIDE [Concomitant]
     Route: 045
  12. CALCIUM [Concomitant]
  13. IBUPROFEN [Concomitant]
     Indication: PAIN
     Route: 048
  14. NASALIDE [Concomitant]
     Dates: start: 20050501
  15. NAPROXEN [Concomitant]
     Indication: PAIN
     Dates: start: 20041201
  16. SYMMETREL [Concomitant]
     Indication: PARKINSON'S DISEASE
     Dates: start: 20000301
  17. TRIHEXYPHENIDYL HCL [Concomitant]
     Dates: start: 20050801
  18. ROPINIROL [Concomitant]
  19. ASPIRIN [Concomitant]
  20. CITRACAL [Concomitant]
  21. LIPITOR [Concomitant]
     Dates: start: 19981201
  22. FLONASE [Concomitant]
     Dates: start: 20010501, end: 20040101
  23. LEVITRA [Concomitant]
     Dates: start: 20031201

REACTIONS (8)
  - COMPULSIVE SHOPPING [None]
  - DEPRESSION [None]
  - HYPERPHAGIA [None]
  - HYPERSEXUALITY [None]
  - OBSESSIVE-COMPULSIVE DISORDER [None]
  - PATHOLOGICAL GAMBLING [None]
  - SUICIDAL IDEATION [None]
  - WEIGHT INCREASED [None]
